FAERS Safety Report 12860742 (Version 2)
Quarter: 2016Q4

REPORT INFORMATION
  Report Type: Spontaneous
  Country: BR (occurrence: BR)
  Receive Date: 20161019
  Receipt Date: 20161111
  Transmission Date: 20170207
  Serious: No
  Sender: FDA-Public Use
  Company Number: BR-LEO PHARMA-244405

PATIENT
  Age: 66 Year
  Sex: Female

DRUGS (3)
  1. SINVASTATIN [Concomitant]
     Active Substance: SIMVASTATIN
     Indication: HYPERTENSION
  2. PICATO [Suspect]
     Active Substance: INGENOL MEBUTATE
     Indication: SKIN DISCOLOURATION
     Route: 061
     Dates: start: 20161003, end: 20161003
  3. LOSARTAN. [Concomitant]
     Active Substance: LOSARTAN
     Indication: HYPERTENSION

REACTIONS (10)
  - Product use issue [Unknown]
  - Eye irritation [Not Recovered/Not Resolved]
  - Application site scab [Not Recovered/Not Resolved]
  - Nausea [Recovered/Resolved]
  - Application site erythema [Recovering/Resolving]
  - Application site exfoliation [Not Recovered/Not Resolved]
  - Hypoaesthesia oral [Recovered/Resolved]
  - Application site swelling [Recovering/Resolving]
  - Application site paraesthesia [Recovering/Resolving]
  - Headache [Not Recovered/Not Resolved]

NARRATIVE: CASE EVENT DATE: 20161003
